FAERS Safety Report 4417687-X (Version None)
Quarter: 2004Q2

REPORT INFORMATION
  Report Type: 
  Country: None (occurrence: None)
  Receive Date: 20040629
  Receipt Date: 20031204
  Transmission Date: 20050107
  Serious: Yes (Other)
  Sender: FDA-Public Use
  Company Number: USA031253941

PATIENT
  Age: 75 Year
  Sex: Male

DRUGS (5)
  1. HUMALOG MIX 75/25 [Suspect]
  2. ATENOLOL [Concomitant]
  3. NORVASC [Concomitant]
  4. PLAVIX [Concomitant]
  5. FUROSEMIDE [Concomitant]

REACTIONS (2)
  - CEREBROVASCULAR ACCIDENT [None]
  - SPEECH DISORDER [None]
